FAERS Safety Report 6993245-8 (Version None)
Quarter: 2010Q3

REPORT INFORMATION
  Report Type: 
  Country: None (occurrence: None)
  Receive Date: 20100917
  Receipt Date: 20100302
  Transmission Date: 20110219
  Serious: No
  Sender: FDA-Public Use
  Company Number: US-ASTRAZENECA-2010SE09019

PATIENT
  Age: 67 Year
  Sex: Female
  Weight: 63.5 kg

DRUGS (4)
  1. SEROQUEL [Suspect]
     Indication: SLEEP DISORDER
     Route: 048
     Dates: start: 20040101, end: 20100201
  2. SEROQUEL [Suspect]
     Route: 048
     Dates: start: 20100201
  3. ZOCOR [Concomitant]
     Route: 048
  4. PRINIVIL [Concomitant]
     Indication: HYPERTENSION

REACTIONS (2)
  - SLEEP DISORDER [None]
  - TREMOR [None]
